FAERS Safety Report 7420889-1 (Version None)
Quarter: 2011Q2

REPORT INFORMATION
  Report Type: 
  Country: None (occurrence: None)
  Receive Date: 20110418
  Receipt Date: 20110317
  Transmission Date: 20111010
  Serious: Yes (Other)
  Sender: FDA-Public Use
  Company Number: A0919475A

PATIENT
  Age: 60 Year
  Sex: Female

DRUGS (2)
  1. TYKERB [Suspect]
     Dosage: 1000MGD PER DAY
     Route: 048
     Dates: start: 20110309, end: 20110403
  2. FASLODEX [Suspect]
     Route: 065
     Dates: start: 20110309

REACTIONS (10)
  - STOMATITIS [None]
  - ABDOMINAL PAIN [None]
  - DIARRHOEA [None]
  - RASH GENERALISED [None]
  - NAUSEA [None]
  - ORAL MUCOSAL EXFOLIATION [None]
  - HYPOTENSION [None]
  - ASTHENIA [None]
  - DEHYDRATION [None]
  - HAEMATOCHEZIA [None]
